FAERS Safety Report 9227101 (Version 1)
Quarter: 2013Q1

REPORT INFORMATION
  Report Type: Spontaneous
  Country: US (occurrence: None)
  Receive Date: 20120927
  Receipt Date: 20120927
  Transmission Date: 20140127
  Serious: No
  Sender: FDA-Public Use
  Company Number: 2012-00394

PATIENT
  Sex: 0

DRUGS (2)
  1. VALPROATE [Suspect]
     Route: 064
  2. CARBAMAZEPINE [Suspect]

REACTIONS (1)
  - Meningomyelocele [None]
